FAERS Safety Report 7492625-4 (Version None)
Quarter: 2011Q2

REPORT INFORMATION
  Report Type: 
  Country: None (occurrence: None)
  Receive Date: 20110519
  Receipt Date: 20110516
  Transmission Date: 20111010
  Serious: Yes (Hospitalization, Other)
  Sender: FDA-Public Use
  Company Number: US-ELI_LILLY_AND_COMPANY-US201103004223

PATIENT
  Sex: Male
  Weight: 88.435 kg

DRUGS (4)
  1. ADCIRCA [Suspect]
     Dosage: 40 MG, DAILY (1/D)
     Dates: start: 20100910
  2. TORSEMIDE [Concomitant]
     Dosage: 20 MG, QD
  3. DIURETICS [Concomitant]
  4. DEMAX [Concomitant]

REACTIONS (2)
  - VENTRICULAR TACHYCARDIA [None]
  - BLOOD POTASSIUM DECREASED [None]
